FAERS Safety Report 5704996-7 (Version None)
Quarter: 2008Q2

REPORT INFORMATION
  Report Type: 
  Country: None (occurrence: None)
  Receive Date: 20080414
  Receipt Date: 20080402
  Transmission Date: 20081010
  Serious: Yes (Other)
  Sender: FDA-Public Use
  Company Number: US-BOEHRINGER INGELHEIM GMBH, GERMANY-2008-DE-01971GD

PATIENT

DRUGS (2)
  1. NEVIRAPINE [Suspect]
     Indication: HIV INFECTION
  2. EPZICOM [Suspect]
     Indication: HIV INFECTION
     Dosage: ABACAVIR 600 MG/LAMIVUDINE 300 MG
     Route: 048

REACTIONS (2)
  - DRUG HYPERSENSITIVITY [None]
  - DRUG INTERACTION [None]
